FAERS Safety Report 9038575 (Version 1)
Quarter: 2013Q1

REPORT INFORMATION
  Report Type: Spontaneous
  Country: DE (occurrence: DE)
  Receive Date: 20130129
  Receipt Date: 20130129
  Transmission Date: 20140127
  Serious: Yes (Other)
  Sender: FDA-Public Use
  Company Number: DE-MYLANLABS-2013S1001277

PATIENT
  Age: 34 Year
  Sex: Male

DRUGS (4)
  1. PREGABALIN [Suspect]
     Indication: ANXIETY
     Route: 065
  2. CLOZAPINE [Interacting]
     Indication: SCHIZOPHRENIA
     Route: 065
  3. METOPROLOL SUCCINATE [Concomitant]
     Indication: HYPERTENSION
     Dosage: 47.5 MG/DAY
     Route: 065
  4. LORAZEPAM [Concomitant]
     Indication: PSYCHOTIC DISORDER
     Dosage: UP TO 2 MG/DAY FOR 1 WEEK
     Route: 065

REACTIONS (2)
  - Antipsychotic drug level increased [Recovering/Resolving]
  - Drug interaction [Recovering/Resolving]
